FAERS Safety Report 7737544-0 (Version None)
Quarter: 2011Q3

REPORT INFORMATION
  Report Type: 
  Country: None (occurrence: None)
  Receive Date: 20110902
  Receipt Date: 20110822
  Transmission Date: 20111222
  Serious: Yes (Hospitalization)
  Sender: FDA-Public Use
  Company Number: JP-2011-10940

PATIENT
  Age: 87 Year
  Sex: Female
  Weight: 39 kg

DRUGS (5)
  1. MICOMB (TELMISARTAN_HYDROCHLOROTHIAZIDE [Concomitant]
  2. PLETAL [Suspect]
     Indication: ARTERIOSCLEROSIS OBLITERANS
     Dosage: 100 MG MILLIGRAM(S), BID, ORAL
     Route: 048
     Dates: start: 20110114
  3. ATELEC (CLINIDIPINE) [Concomitant]
  4. RABEPRAZOLE SODIUM [Concomitant]
  5. NOVORAPID 30 MIX (INSULIN ASPART (FENETICAL RECOMBINATON)) [Concomitant]

REACTIONS (4)
  - GANGRENE [None]
  - CARDIAC FAILURE [None]
  - ATRIAL TACHYCARDIA [None]
  - CONDITION AGGRAVATED [None]
